FAERS Safety Report 22526169 (Version 1)
Quarter: 2023Q2

REPORT INFORMATION
  Report Type: Spontaneous
  Country: US (occurrence: US)
  Receive Date: 20230606
  Receipt Date: 20230606
  Transmission Date: 20230721
  Serious: No
  Sender: FDA-Public Use
  Company Number: US-ALMIRALL, LLC-2022AQU000399

PATIENT

DRUGS (1)
  1. ALTABAX [Suspect]
     Active Substance: RETAPAMULIN
     Indication: Product used for unknown indication
     Dosage: UNK

REACTIONS (7)
  - Adverse reaction [Unknown]
  - Cardiospasm [Unknown]
  - Muscle spasms [Unknown]
  - Lung disorder [Unknown]
  - Pain [Unknown]
  - Asthenia [Unknown]
  - Tremor [Unknown]
